FAERS Safety Report 10712442 (Version 2)
Quarter: 2015Q1

REPORT INFORMATION
  Report Type: Spontaneous
  Country: US (occurrence: US)
  Receive Date: 20150115
  Receipt Date: 20150225
  Transmission Date: 20150721
  Serious: Yes (Other)
  Sender: FDA-Public Use
  Company Number: US-AMGEN-USASP2015002285

PATIENT
  Age: 59 Year
  Sex: Male

DRUGS (1)
  1. ENBREL [Suspect]
     Active Substance: ETANERCEPT
     Indication: ANKYLOSING SPONDYLITIS
     Dosage: 50 MG, QWK
     Route: 065
     Dates: start: 19960101

REACTIONS (13)
  - Diabetes mellitus [Not Recovered/Not Resolved]
  - Nephrolithiasis [Recovered/Resolved]
  - Pain in extremity [Not Recovered/Not Resolved]
  - Ankylosing spondylitis [Not Recovered/Not Resolved]
  - Stress [Not Recovered/Not Resolved]
  - Frustration [Not Recovered/Not Resolved]
  - Injection site pain [Recovered/Resolved]
  - Mobility decreased [Not Recovered/Not Resolved]
  - Gait disturbance [Not Recovered/Not Resolved]
  - Arthropathy [Unknown]
  - Pain [Recovered/Resolved]
  - Injection site extravasation [Recovered/Resolved]
  - Impaired work ability [Not Recovered/Not Resolved]

NARRATIVE: CASE EVENT DATE: 2014
